FAERS Safety Report 9842077 (Version 1)
Quarter: 2014Q1

REPORT INFORMATION
  Report Type: Spontaneous
  Country: US (occurrence: US)
  Receive Date: 20140124
  Receipt Date: 20140124
  Transmission Date: 20141002
  Serious: Yes (Other)
  Sender: FDA-Public Use
  Company Number: CHPA2014US000936

PATIENT
  Age: 58 Year
  Sex: Female

DRUGS (3)
  1. EX-LAX REG STR CHOCOLATED LAX PCS SEN [Suspect]
     Indication: BOWEL MOVEMENT IRREGULARITY
     Dosage: 2 DF, PRN
     Route: 048
  2. EX-LAX REG STR CHOCOLATED LAX PCS SEN [Suspect]
     Dosage: 1 DF, UNK
     Route: 048
  3. DULCOLAX [Suspect]

REACTIONS (3)
  - Hernia [Unknown]
  - Accidental exposure to product [Unknown]
  - Drug ineffective [Unknown]
